FAERS Safety Report 12293988 (Version 2)
Quarter: 2016Q3

REPORT INFORMATION
  Report Type: Report from Study
  Country: BR (occurrence: BR)
  Receive Date: 20160422
  Receipt Date: 20160715
  Transmission Date: 20161109
  Serious: Yes (Hospitalization)
  Sender: FDA-Public Use
  Company Number: BR-ROCHE-1745272

PATIENT
  Sex: Female

DRUGS (1)
  1. MABTHERA [Suspect]
     Active Substance: RITUXIMAB
     Indication: RHEUMATOID ARTHRITIS
     Dosage: MOST RECENT DOSE ON 15/JUL/2015
     Route: 042
     Dates: start: 20150101

REACTIONS (3)
  - Arthropathy [Unknown]
  - Cardiac arrest [Recovering/Resolving]
  - Dyspnoea [Recovering/Resolving]
